FAERS Safety Report 25284590 (Version 1)
Quarter: 2025Q2

REPORT INFORMATION
  Report Type: Spontaneous
  Country: US (occurrence: US)
  Receive Date: 20250508
  Receipt Date: 20250508
  Transmission Date: 20250716
  Serious: Yes (Hospitalization, Other)
  Sender: SANOFI AVENTIS
  Company Number: US-DialogSolutions-SAAVPROD-PI766437-C1

PATIENT
  Sex: Male

DRUGS (3)
  1. CLOPIDOGREL BISULFATE [Suspect]
     Active Substance: CLOPIDOGREL BISULFATE
     Indication: Cerebral endovascular aneurysm repair
  2. ASPIRIN [Suspect]
     Active Substance: ASPIRIN
     Indication: Cerebral endovascular aneurysm repair
  3. CILOSTAZOL [Suspect]
     Active Substance: CILOSTAZOL
     Indication: Cerebral endovascular aneurysm repair

REACTIONS (2)
  - Hypertensive crisis [Unknown]
  - Cerebral haemorrhage [Unknown]
